FAERS Safety Report 8816070 (Version 1)
Quarter: 2012Q4

REPORT INFORMATION
  Report Type: 
  Country: BR (occurrence: BR)
  Receive Date: 20120928
  Receipt Date: 20120928
  Transmission Date: 20130627
  Serious: Yes (Hospitalization)
  Sender: FDA-Public Use
  Company Number: BR-SANOFI-AVENTIS-2012SA069463

PATIENT
  Age: 75 Year
  Sex: Male
  Weight: 55 kg

DRUGS (9)
  1. LANTUS [Suspect]
     Indication: TYPE II DIABETES MELLITUS
     Route: 058
     Dates: start: 1992
  2. INSULIN PEN NOS [Suspect]
     Indication: DEVICE THERAPY
     Dates: start: 1992
  3. AMLODIPINE [Concomitant]
     Dates: start: 2011
  4. VITAMIN B COMPLEX [Concomitant]
     Dates: start: 2008
  5. CRESTOR /UNK/ [Concomitant]
     Dates: start: 2008
  6. ENALAPRIL [Concomitant]
     Dates: start: 2011
  7. ENDOFOLIN [Concomitant]
     Dates: start: 2008
  8. SPIRONOLACTONE [Concomitant]
     Dates: start: 2011
  9. GABAPENTIN [Concomitant]
     Dates: start: 2008

REACTIONS (3)
  - Sepsis [Not Recovered/Not Resolved]
  - Osteomyelitis [Not Recovered/Not Resolved]
  - Condition aggravated [Unknown]
